FAERS Safety Report 19581337 (Version 1)
Quarter: 2021Q3

REPORT INFORMATION
  Report Type: Spontaneous
  Country: FR (occurrence: FR)
  Receive Date: 20210720
  Receipt Date: 20210720
  Transmission Date: 20211014
  Serious: Yes (Other)
  Sender: FDA-Public Use
  Company Number: FR-AUROBINDO-AUR-APL-2021-031587

PATIENT
  Age: 66 Year
  Sex: Male

DRUGS (3)
  1. ZOPICLONE ARROW [Interacting]
     Active Substance: ZOPICLONE
     Indication: INSOMNIA
     Dosage: 7.5 MILLIGRAM, ONCE A DAY
     Route: 048
     Dates: start: 202104
  2. CASPOFUNGINE MYLAN [Suspect]
     Active Substance: CASPOFUNGIN ACETATE
     Indication: INFECTION
     Dosage: 70 MILLIGRAM, ONCE A DAY
     Route: 042
     Dates: start: 20210427, end: 20210514
  3. ALPRAZOLAM ARROW [Suspect]
     Active Substance: ALPRAZOLAM
     Indication: ANXIETY
     Dosage: 0.25 MILLIGRAM, ONCE A DAY
     Route: 048
     Dates: start: 20210509, end: 20210514

REACTIONS (1)
  - Encephalopathy [Recovered/Resolved]

NARRATIVE: CASE EVENT DATE: 20210514
